FAERS Safety Report 5279533-4 (Version None)
Quarter: 2007Q1

REPORT INFORMATION
  Report Type: 
  Country: None (occurrence: None)
  Receive Date: 20070328
  Receipt Date: 20070317
  Transmission Date: 20070707
  Serious: Yes (Other)
  Sender: FDA-Public Use
  Company Number: US-PFIZER INC-2007016026

PATIENT
  Sex: Male
  Weight: 113.4 kg

DRUGS (8)
  1. NORVASC [Suspect]
     Indication: HYPERTENSION
     Route: 048
  2. TRAZODONE HCL [Concomitant]
  3. OMEPRAZOLE [Concomitant]
  4. AVIL [Concomitant]
  5. CITALOPRAM HYDROBROMIDE [Concomitant]
  6. CELEXA [Concomitant]
     Indication: DEPRESSION
  7. LORAZEPAM [Concomitant]
     Indication: DEPRESSION
  8. MIRAPEX [Concomitant]

REACTIONS (7)
  - BACK PAIN [None]
  - BLOOD PRESSURE INADEQUATELY CONTROLLED [None]
  - DISABILITY [None]
  - LUNG NEOPLASM MALIGNANT [None]
  - MUSCULOSKELETAL PAIN [None]
  - PAIN IN EXTREMITY [None]
  - POLLAKIURIA [None]
